FAERS Safety Report 7027105-3 (Version None)
Quarter: 2010Q4

REPORT INFORMATION
  Report Type: 
  Country: None (occurrence: None)
  Receive Date: 20101001
  Receipt Date: 20101001
  Transmission Date: 20110411
  Serious: Yes (Other)
  Sender: FDA-Public Use
  Company Number: None

PATIENT
  Age: 10 Year
  Sex: Male
  Weight: 58.0604 kg

DRUGS (4)
  1. RISPERIDONE [Suspect]
     Indication: ATTENTION DEFICIT/HYPERACTIVITY DISORDER
     Dosage: 1 TAB @ HS
  2. RISPERIDONE [Suspect]
     Indication: AUTISM SPECTRUM DISORDER
     Dosage: 1 TAB @ HS
  3. RISPERIDONE [Suspect]
     Indication: OPPOSITIONAL DEFIANT DISORDER
     Dosage: 1 TAB @ HS
  4. CONCERTA [Concomitant]

REACTIONS (3)
  - DISTURBANCE IN ATTENTION [None]
  - EDUCATIONAL PROBLEM [None]
  - PRODUCT SUBSTITUTION ISSUE [None]
